FAERS Safety Report 21963027 (Version 1)
Quarter: 2023Q1

REPORT INFORMATION
  Report Type: Spontaneous
  Country: US (occurrence: None)
  Receive Date: 20230205
  Receipt Date: 20230205
  Transmission Date: 20230418
  Serious: Yes (Other)
  Sender: FDA-Public Use
  Company Number: None

PATIENT
  Age: 60 Year
  Sex: Male
  Weight: 106.65 kg

DRUGS (23)
  1. GABAPENTIN [Suspect]
     Active Substance: GABAPENTIN
     Indication: Neuropathy peripheral
     Dosage: OTHER QUANTITY : 90 CAPSULE(S);?FREQUENCY : 3 TIMES A DAY;?
     Route: 048
     Dates: start: 20220913, end: 20221110
  2. DEVICE [Concomitant]
     Active Substance: DEVICE
  3. LISINOPRIL [Concomitant]
     Active Substance: LISINOPRIL
  4. PRASUGREL [Concomitant]
     Active Substance: PRASUGREL
  5. ASPIRIN [Concomitant]
     Active Substance: ASPIRIN
  6. METHOCARBAMOL [Concomitant]
     Active Substance: METHOCARBAMOL
  7. TRAZODONE [Concomitant]
     Active Substance: TRAZODONE HYDROCHLORIDE
  8. PROPRANOLOL [Concomitant]
     Active Substance: PROPRANOLOL HYDROCHLORIDE
  9. Tolterdine [Concomitant]
  10. CYMBALTA [Concomitant]
     Active Substance: DULOXETINE HYDROCHLORIDE
  11. CIALIS [Concomitant]
     Active Substance: TADALAFIL
  12. CRESTOR [Concomitant]
     Active Substance: ROSUVASTATIN CALCIUM
  13. ACETAZOLAMIDE [Concomitant]
     Active Substance: ACETAZOLAMIDE
  14. NUVIGIL [Concomitant]
     Active Substance: ARMODAFINIL
  15. NEXIUM [Concomitant]
     Active Substance: ESOMEPRAZOLE MAGNESIUM
  16. MELOXICAM [Concomitant]
     Active Substance: MELOXICAM
  17. CLONAZEPAM [Concomitant]
     Active Substance: CLONAZEPAM
  18. OTC Multi-Vita [Concomitant]
  19. IRON [Concomitant]
     Active Substance: IRON
  20. VITAMIN B12 [Concomitant]
     Active Substance: CYANOCOBALAMIN
  21. VITAMIN D3 [Concomitant]
     Active Substance: CHOLECALCIFEROL
  22. ZYRTEC [Concomitant]
     Active Substance: CETIRIZINE HYDROCHLORIDE
  23. ALLEGRA [Concomitant]
     Active Substance: FEXOFENADINE HYDROCHLORIDE

REACTIONS (8)
  - Irritability [None]
  - Frustration tolerance decreased [None]
  - Anxiety [None]
  - Headache [None]
  - Amnesia [None]
  - Mood altered [None]
  - Aggression [None]
  - Aggression [None]

NARRATIVE: CASE EVENT DATE: 20221109
